FAERS Safety Report 19812878 (Version 1)
Quarter: 2021Q3

REPORT INFORMATION
  Report Type: Spontaneous
  Country: US (occurrence: US)
  Receive Date: 20210907
  Receipt Date: 20210907
  Transmission Date: 20211014
  Serious: No
  Sender: FDA-Public Use
  Company Number: None

PATIENT
  Age: 62 Year
  Sex: Male

DRUGS (1)
  1. WARFARIN (WARFAIN NA (EXELAN) 6MG TAB ) [Suspect]
     Active Substance: WARFARIN SODIUM
     Indication: ATRIAL FIBRILLATION
     Dates: start: 20201013

REACTIONS (5)
  - Dysphagia [None]
  - Haematemesis [None]
  - Gastrointestinal haemorrhage [None]
  - Anticoagulation drug level below therapeutic [None]
  - Retching [None]

NARRATIVE: CASE EVENT DATE: 20210809
